FAERS Safety Report 18066884 (Version 1)
Quarter: 2020Q3

REPORT INFORMATION
  Report Type: Report from Study
  Country: HN (occurrence: HN)
  Receive Date: 20200724
  Receipt Date: 20200724
  Transmission Date: 20201103
  Serious: Yes (Other)
  Sender: FDA-Public Use
  Company Number: NVSC2020HN206058

PATIENT
  Age: 74 Year
  Sex: Male

DRUGS (1)
  1. EXFORGE [Suspect]
     Active Substance: AMLODIPINE BESYLATE\VALSARTAN
     Indication: PRODUCT USED FOR UNKNOWN INDICATION
     Dosage: 1 YEAR AND 8 MONTH APPROXIMATELY
     Route: 065

REACTIONS (5)
  - Ear injury [Unknown]
  - Fall [Unknown]
  - Product prescribing error [Unknown]
  - Hypoacusis [Unknown]
  - Wrong technique in product usage process [Unknown]
